FAERS Safety Report 15978902 (Version 1)
Quarter: 2019Q1

REPORT INFORMATION
  Report Type: Spontaneous
  Country: FR (occurrence: FR)
  Receive Date: 20190219
  Receipt Date: 20190219
  Transmission Date: 20190418
  Serious: Yes (Hospitalization)
  Sender: FDA-Public Use
  Company Number: FR-SUN PHARMACEUTICAL INDUSTRIES LTD-2019RR-199442

PATIENT
  Age: 77 Year
  Sex: Female
  Weight: 55 kg

DRUGS (6)
  1. DOLIPRANE [Concomitant]
     Active Substance: ACETAMINOPHEN
     Indication: PAIN
     Dosage: 1 GRAM
     Route: 048
  2. NATISPRAY FORT 0,40 MG, SOLUTION SUBLINGUALE [Concomitant]
     Indication: ANGINA PECTORIS
     Dosage: ()
     Route: 060
  3. VENLAFAXINE [Suspect]
     Active Substance: VENLAFAXINE HYDROCHLORIDE
     Indication: DEPRESSION
     Dosage: 112.5 MILLIGRAM, DAILY
     Route: 048
  4. BISOPROLOL (FUMARATE DE) [Concomitant]
     Active Substance: BISOPROLOL FUMARATE
     Indication: ANGINA PECTORIS
     Dosage: 7.5 MILLIGRAM, DAILY
     Route: 048
  5. DUOPLAVIN [Interacting]
     Active Substance: ASPIRIN\CLOPIDOGREL
     Indication: PROPHYLAXIS
     Dosage: 1 DOSAGE FORM, DAILY
     Route: 048
  6. ATORVASTATINE [Concomitant]
     Active Substance: ATORVASTATIN
     Indication: ANGINA PECTORIS
     Dosage: 40 MILLIGRAM, DAILY
     Route: 048

REACTIONS (2)
  - Haemorrhagic stroke [Recovering/Resolving]
  - Drug interaction [Recovering/Resolving]

NARRATIVE: CASE EVENT DATE: 20190115
